FAERS Safety Report 4408491-7 (Version None)
Quarter: 2004Q3

REPORT INFORMATION
  Report Type: 
  Country: None (occurrence: None)
  Receive Date: 20040722
  Receipt Date: 20040715
  Transmission Date: 20050211
  Serious: Yes (Other)
  Sender: FDA-Public Use
  Company Number: STA-AE-04-MTX-307

PATIENT

DRUGS (9)
  1. METHOTREXATE [Suspect]
  2. ETANERCEPT (ETANERCEPT, INJECTION) [Suspect]
     Indication: WEGENER'S GRANULOMATOSIS
     Dosage: 25 MG 2X PER 1 WK, SC
     Route: 058
  3. AZATHIOPRINE [Suspect]
  4. CORTICOSTEROID NOS (CORTICOSTEROID NOS) [Suspect]
  5. CYCLOPHOSPHAMIDE [Concomitant]
  6. PREDNISONE [Concomitant]
  7. SULFAMETHOXAZOLE + TRIMETHOPRIM [Concomitant]
  8. FUROSEMIDE [Concomitant]
  9. CYCLOBENZAPRINE HCL [Concomitant]

REACTIONS (2)
  - ALANINE AMINOTRANSFERASE INCREASED [None]
  - HERPES ZOSTER [None]
